FAERS Safety Report 5700339-3 (Version None)
Quarter: 2008Q2

REPORT INFORMATION
  Report Type: 
  Country: None (occurrence: None)
  Receive Date: 20080410
  Receipt Date: 20080403
  Transmission Date: 20081010
  Serious: Yes (Other)
  Sender: FDA-Public Use
  Company Number: US-PFIZER INC-2008029798

PATIENT
  Sex: Male

DRUGS (1)
  1. DETROL LA [Suspect]

REACTIONS (3)
  - INSOMNIA [None]
  - NEOPLASM [None]
  - POLLAKIURIA [None]
